FAERS Safety Report 8339058-6 (Version None)
Quarter: 2012Q2

REPORT INFORMATION
  Report Type: 
  Country: None (occurrence: None)
  Receive Date: 20120502
  Receipt Date: 20120418
  Transmission Date: 20120825
  Serious: Yes (Other)
  Sender: FDA-Public Use
  Company Number: 1202-092

PATIENT
  Age: 73 Year
  Sex: Female

DRUGS (12)
  1. METOPROLOL TARTRATE [Concomitant]
  2. SERTRALINE HYDROCHLORIDE [Concomitant]
  3. ASPIRIN [Concomitant]
  4. MIRALAX [Concomitant]
  5. POTASSIUM CHLORIDE [Concomitant]
  6. AMLODIPINE [Concomitant]
  7. MULTI-VITAMINS [Concomitant]
  8. PRESERVISION (OCUVITE) [Concomitant]
  9. EYLEA [Suspect]
     Indication: AGE-RELATED MACULAR DEGENERATION
     Dosage: 2 MG, INTRAVITREAL
     Route: 011
     Dates: start: 20120208
  10. LOVAZA [Concomitant]
  11. TRAZODONE HCL [Concomitant]
  12. VICODIN [Concomitant]

REACTIONS (2)
  - UVEITIS [None]
  - IRIS ADHESIONS [None]
